FAERS Safety Report 7666031-3 (Version None)
Quarter: 2011Q3

REPORT INFORMATION
  Report Type: 
  Country: None (occurrence: None)
  Receive Date: 20110806
  Receipt Date: 20110525
  Transmission Date: 20111222
  Serious: No
  Sender: FDA-Public Use
  Company Number: US-ABBOTT-11P-163-0728407-00

PATIENT
  Sex: Male
  Weight: 102.6 kg

DRUGS (3)
  1. IBUPROFEN [Concomitant]
     Indication: PRODUCT USED FOR UNKNOWN INDICATION
  2. NIASPAN [Suspect]
     Indication: BLOOD CHOLESTEROL ABNORMAL
     Dosage: AT BEDTIME
     Dates: start: 20100501
  3. NIASPAN [Suspect]
     Indication: BLOOD CHOLESTEROL ABNORMAL
     Dosage: 2 TABLETS AT NIGHT

REACTIONS (2)
  - BURNING SENSATION [None]
  - FLUSHING [None]
